FAERS Safety Report 20029569 (Version 2)
Quarter: 2022Q3

REPORT INFORMATION
  Report Type: Spontaneous
  Country: CN (occurrence: CN)
  Receive Date: 20211103
  Receipt Date: 20220706
  Transmission Date: 20221027
  Serious: No
  Sender: FDA-Public Use
  Company Number: CN-PFIZER INC-202101371989

PATIENT
  Age: 28 Year
  Sex: Female

DRUGS (25)
  1. SILDENAFIL CITRATE [Suspect]
     Active Substance: SILDENAFIL CITRATE
     Indication: Pulmonary arterial hypertension
     Dosage: 50 MG
  2. SILDENAFIL CITRATE [Suspect]
     Active Substance: SILDENAFIL CITRATE
     Indication: Systemic lupus erythematosus
     Dosage: 75 MG
  3. REMODULIN [Suspect]
     Active Substance: TREPROSTINIL
     Indication: Pulmonary arterial hypertension
     Dosage: UNK (0.45-0.9 NG/KG.MIN)
  4. REMODULIN [Suspect]
     Active Substance: TREPROSTINIL
     Indication: Systemic lupus erythematosus
     Dosage: UNK (1-1.2 NG/KG.MIN)
  5. REMODULIN [Suspect]
     Active Substance: TREPROSTINIL
     Indication: Dyspnoea
     Dosage: UNK (2.0 NG/KG/MIN)
  6. TREPROSTINIL [Suspect]
     Active Substance: TREPROSTINIL
     Indication: Pulmonary arterial hypertension
     Dosage: UNK
  7. TREPROSTINIL [Suspect]
     Active Substance: TREPROSTINIL
     Indication: Systemic lupus erythematosus
  8. AMBRISENTAN [Suspect]
     Active Substance: AMBRISENTAN
     Indication: Systemic lupus erythematosus
     Dosage: 10 MG, DAILY
  9. AMBRISENTAN [Suspect]
     Active Substance: AMBRISENTAN
     Indication: Pulmonary arterial hypertension
  10. HEPARIN [Concomitant]
     Active Substance: HEPARIN SODIUM
     Dosage: 4000 IU
  11. HEPARIN [Concomitant]
     Active Substance: HEPARIN SODIUM
     Dosage: 5000 IU, 2X/DAY
     Route: 058
  12. PREDNISONE [Concomitant]
     Active Substance: PREDNISONE
     Dosage: 10 MG
  13. PREDNISONE [Concomitant]
     Active Substance: PREDNISONE
     Dosage: 50 MG
  14. POTASSIUM CHLORIDE [Concomitant]
     Active Substance: POTASSIUM CHLORIDE
     Dosage: 0.5 G, 2X/DAY
  15. HYDROXYCHLOROQUINE [Concomitant]
     Active Substance: HYDROXYCHLOROQUINE
     Dosage: UNK
  16. FUROSEMIDE [Concomitant]
     Active Substance: FUROSEMIDE
     Dosage: 20 MG, DAILY
  17. CYCLOSPORINE [Concomitant]
     Active Substance: CYCLOSPORINE
     Dosage: UNK
  18. LIDOCAINE [Concomitant]
     Active Substance: LIDOCAINE
     Dosage: 3 ML
  19. EPINEPHRINE [Concomitant]
     Active Substance: EPINEPHRINE
     Indication: Hypotension
     Dosage: UNK (0.01-0.02 UG/KG/MIN)
  20. NOREPINEPHRINE [Concomitant]
     Active Substance: NOREPINEPHRINE
     Indication: Hypotension
     Dosage: UNK (0.01-0.05 UG/KG/MIN)
  21. OXYCODONE [Concomitant]
     Active Substance: OXYCODONE
     Dosage: 3 MG
  22. SUFENTANIL [Concomitant]
     Active Substance: SUFENTANIL
     Dosage: UNK
  23. LEVOSIMENDAN [Concomitant]
     Active Substance: LEVOSIMENDAN
     Dosage: 6 UG/KG
  24. ASPIRIN [Concomitant]
     Active Substance: ASPIRIN
     Dosage: 100 MG
  25. WARFARIN [Concomitant]
     Active Substance: WARFARIN
     Dosage: 1.5 MG

REACTIONS (1)
  - Maternal exposure timing unspecified [Unknown]

NARRATIVE: CASE EVENT DATE: 20200110
